FAERS Safety Report 8847998 (Version 1)
Quarter: 2012Q4

REPORT INFORMATION
  Report Type: 
  Country: US (occurrence: US)
  Receive Date: 20121018
  Receipt Date: 20121018
  Transmission Date: 20130627
  Serious: Yes (Other)
  Sender: FDA-Public Use
  Company Number: US-GLAXOSMITHKLINE-A0996994A

PATIENT
  Age: 44 Year
  Sex: Female

DRUGS (10)
  1. BENLYSTA [Suspect]
     Indication: SYSTEMIC LUPUS ERYTHEMATOSUS
     Route: 042
     Dates: start: 20120801
  2. CLONIDINE [Concomitant]
  3. BENADRYL [Concomitant]
  4. TYLENOL [Concomitant]
  5. LORTAB [Concomitant]
  6. PREDNISONE [Concomitant]
  7. PLAQUENIL [Concomitant]
  8. VITAMIN D [Concomitant]
  9. ZANAFLEX [Concomitant]
  10. NADOLOL [Concomitant]

REACTIONS (12)
  - Urinary tract infection [Recovered/Resolved]
  - Influenza like illness [Recovered/Resolved]
  - Chills [Recovered/Resolved]
  - Pyrexia [Recovered/Resolved]
  - Back pain [Recovered/Resolved]
  - Bladder spasm [Recovered/Resolved]
  - Dysuria [Recovered/Resolved]
  - Pain [Recovered/Resolved]
  - Crying [Recovered/Resolved]
  - Migraine [Recovered/Resolved]
  - Headache [Recovered/Resolved]
  - Bone pain [Recovered/Resolved]
